FAERS Safety Report 4779873-9 (Version None)
Quarter: 2005Q3

REPORT INFORMATION
  Report Type: 
  Country: None (occurrence: None)
  Receive Date: 20050914
  Receipt Date: 20050210
  Transmission Date: 20060218
  Serious: Yes (Hospitalization, Other)
  Sender: FDA-Public Use
  Company Number: 163-20785-04090421

PATIENT
  Age: 62 Year
  Sex: Male
  Weight: 74.4 kg

DRUGS (19)
  1. THALOMID [Suspect]
     Indication: CHRONIC LYMPHOCYTIC LEUKAEMIA
     Dosage: SEE IMAGE
     Route: 048
     Dates: start: 20040422, end: 20040910
  2. ACETAMINOPHEN [Concomitant]
  3. ALBUTEROL (SALBUTAMOL) (SOLUTION) [Concomitant]
  4. ARTIFICIAL TEARS (ARTIFICIAL TEARS) (SOLUTION) [Concomitant]
  5. AZITHROMYCIN [Concomitant]
  6. BACTRIM DS [Concomitant]
  7. BENADRYL (CLONALIN) [Concomitant]
  8. CELEXA [Concomitant]
  9. CODEINE PHOSPHATE (CODEINE PHOSPHATE) (LIQUID) [Concomitant]
  10. COLACE (DOCUSATE SODIUM) [Concomitant]
  11. LEXAPRO [Concomitant]
  12. MAGNESIUM OXIDE [Concomitant]
  13. PROTONIX [Concomitant]
  14. ROBITUSSIN DM (ROBITUSSIN-DM) (LIQUID) [Concomitant]
  15. SENNA [Concomitant]
  16. SENOKOT [Concomitant]
  17. TUSSIONEX (TUSSIONEX ^PENNWALT^) [Concomitant]
  18. VALTREX [Concomitant]
  19. ZOSYN [Concomitant]

REACTIONS (2)
  - BASAL CELL CARCINOMA [None]
  - PNEUMONIA BACTERIAL [None]
